FAERS Safety Report 5463869-8 (Version None)
Quarter: 2007Q3

REPORT INFORMATION
  Report Type: 
  Country: None (occurrence: None)
  Receive Date: 20070712
  Receipt Date: 20070208
  Transmission Date: 20080115
  Serious: Yes (Hospitalization)
  Sender: FDA-Public Use
  Company Number: 200711557

PATIENT
  Age: 90 Year
  Sex: Female
  Weight: 47.6 kg

DRUGS (11)
  1. CARIMUNE NF (CSL BEHRING) [Suspect]
     Indication: EPIDERMOLYSIS BULLOSA
     Dosage: 18 G QD IV; IV; IV;
     Route: 042
     Dates: start: 20070130, end: 20070201
  2. CARIMUNE NF (CSL BEHRING) [Suspect]
  3. FLEBOGAMMA [Suspect]
     Dosage: 20 G QD IV
     Route: 042
     Dates: start: 20070202, end: 20070203
  4. HYDROCHLOROTHIAZIDE [Concomitant]
  5. ACETAMINOPHEN [Concomitant]
  6. AMLODIPINE [Concomitant]
  7. ASCORBIC ACID [Concomitant]
  8. BISACODYL [Concomitant]
  9. CALCIUM CARBONATE [Concomitant]
  10. CAPTOPRIL [Concomitant]
  11. FERROUS SULFATE TAB [Concomitant]

REACTIONS (3)
  - BLOOD CREATININE INCREASED [None]
  - RENAL FAILURE ACUTE [None]
  - RENAL TUBULAR NECROSIS [None]
